FAERS Safety Report 22248876 (Version 4)
Quarter: 2023Q2

REPORT INFORMATION
  Report Type: Report from Study
  Country: GB (occurrence: GB)
  Receive Date: 20230425
  Receipt Date: 20230623
  Transmission Date: 20230721
  Serious: Yes (Other)
  Sender: FDA-Public Use
  Company Number: GB-002147023-NVSC2023GB090057

PATIENT
  Age: 33 Year
  Sex: Female

DRUGS (5)
  1. KESIMPTA [Suspect]
     Active Substance: OFATUMUMAB
     Indication: Multiple sclerosis
     Dosage: 20 MG, QW
     Route: 058
     Dates: start: 20230413
  2. KESIMPTA [Suspect]
     Active Substance: OFATUMUMAB
     Dosage: 20 MG, QW (2ND INJECTION TAKEN ON YESTERDAY, WENT WELL AND SHE FEELS BETTER THAN SHE DID ON THE FIRS
     Route: 058
     Dates: start: 20230420
  3. KESIMPTA [Suspect]
     Active Substance: OFATUMUMAB
     Dosage: UNK
     Route: 058
     Dates: start: 20230427
  4. KESIMPTA [Suspect]
     Active Substance: OFATUMUMAB
     Dosage: 20 MG, Q2W (ONCE EVERY TWO WEEKS)
     Route: 058
     Dates: start: 20230511
  5. KESIMPTA [Suspect]
     Active Substance: OFATUMUMAB
     Dosage: 20 MG, QMO
     Route: 058
     Dates: start: 20230611

REACTIONS (18)
  - Seizure [Recovered/Resolved]
  - Haemophilus infection [Not Recovered/Not Resolved]
  - Influenza like illness [Unknown]
  - Pyrexia [Recovered/Resolved]
  - Chills [Recovered/Resolved]
  - Malaise [Unknown]
  - Feeling cold [Recovering/Resolving]
  - Pain [Unknown]
  - Headache [Not Recovered/Not Resolved]
  - Fatigue [Recovering/Resolving]
  - Rash [Recovering/Resolving]
  - Lower respiratory tract infection [Recovering/Resolving]
  - Sputum discoloured [Not Recovered/Not Resolved]
  - Peripheral swelling [Not Recovered/Not Resolved]
  - Weight increased [Not Recovered/Not Resolved]
  - Pruritus [Recovered/Resolved]
  - Pyrexia [Recovered/Resolved]
  - Pyrexia [Recovered/Resolved]

NARRATIVE: CASE EVENT DATE: 20230413
